FAERS Safety Report 10650684 (Version 2)
Quarter: 2015Q1

REPORT INFORMATION
  Report Type: Report from Study
  Country: BR (occurrence: BR)
  Receive Date: 20141214
  Receipt Date: 20150109
  Transmission Date: 20150720
  Serious: Yes (Death, Hospitalization, Other)
  Sender: FDA-Public Use
  Company Number: PHHY2014BR163008

PATIENT
  Age: 85 Year
  Sex: Female
  Weight: 50 kg

DRUGS (6)
  1. EXELON PATCH [Suspect]
     Active Substance: RIVASTIGMINE
     Indication: DEMENTIA ALZHEIMER^S TYPE
     Dosage: 4.6 MG (PATCH 5M2), QD
     Route: 062
     Dates: start: 201407
  2. SEROQUEL [Concomitant]
     Active Substance: QUETIAPINE FUMARATE
     Indication: PRODUCT USED FOR UNKNOWN INDICATION
     Route: 065
  3. CAPTOPRIL. [Concomitant]
     Active Substance: CAPTOPRIL
     Indication: PRODUCT USED FOR UNKNOWN INDICATION
     Route: 065
  4. EXELON [Suspect]
     Active Substance: RIVASTIGMINE TARTRATE
     Indication: DEMENTIA ALZHEIMER^S TYPE
     Dosage: 2 DF (2 CAPSULES), QD
     Route: 048
     Dates: start: 2004
  5. EXELON [Suspect]
     Active Substance: RIVASTIGMINE TARTRATE
     Dosage: 2 DF (2 CAPSULES), QD
     Route: 048
     Dates: start: 201409
  6. OMEPRAZOLE. [Concomitant]
     Active Substance: OMEPRAZOLE
     Indication: PRODUCT USED FOR UNKNOWN INDICATION
     Route: 065

REACTIONS (7)
  - Pneumonia [Fatal]
  - Gait disturbance [Unknown]
  - Infarction [Fatal]
  - Renal failure [Fatal]
  - Dementia Alzheimer^s type [Fatal]
  - Apathy [Fatal]
  - Application site erythema [Not Recovered/Not Resolved]

NARRATIVE: CASE EVENT DATE: 201407
